FAERS Safety Report 17803347 (Version 5)
Quarter: 2020Q4

REPORT INFORMATION
  Report Type: Spontaneous
  Country: US (occurrence: US)
  Receive Date: 20200519
  Receipt Date: 20201019
  Transmission Date: 20210113
  Serious: Yes (Other)
  Sender: FDA-Public Use
  Company Number: US-PFIZER INC-2020153797

PATIENT
  Age: 69 Year
  Sex: Female
  Weight: 106.59 kg

DRUGS (6)
  1. IBRANCE [Suspect]
     Active Substance: PALBOCICLIB
     Dosage: UNK (8TH COURSE)
     Dates: start: 20200625
  2. ANASTROZOLE. [Concomitant]
     Active Substance: ANASTROZOLE
     Indication: ANTIOESTROGEN THERAPY
     Dosage: 1 MG, DAILY
     Route: 048
     Dates: start: 20191106
  3. IBRANCE [Suspect]
     Active Substance: PALBOCICLIB
     Dosage: UNK (7TH COURSE)
     Dates: start: 20200527
  4. IBRANCE [Suspect]
     Active Substance: PALBOCICLIB
     Indication: BREAST CANCER FEMALE
     Dosage: 125 MG, DAILY
     Route: 048
     Dates: start: 20191201
  5. IBRANCE [Suspect]
     Active Substance: PALBOCICLIB
     Dosage: 125 MG
  6. ZOMETA [Concomitant]
     Active Substance: ZOLEDRONIC ACID
     Indication: BONE CANCER
     Dosage: 4 MG, EVERY 3 MONTHS
     Dates: start: 201911

REACTIONS (16)
  - Toothache [Unknown]
  - Vitamin D increased [Unknown]
  - Gait disturbance [Unknown]
  - Limb injury [Not Recovered/Not Resolved]
  - Anger [Unknown]
  - Dental caries [Unknown]
  - Frustration tolerance decreased [Unknown]
  - Vein disorder [Unknown]
  - Immunosuppression [Unknown]
  - Neoplasm progression [Unknown]
  - Arthritis [Unknown]
  - Impaired healing [Not Recovered/Not Resolved]
  - Therapeutic response unexpected [Unknown]
  - Pre-existing condition improved [Unknown]
  - Fear [Unknown]
  - Stress [Unknown]

NARRATIVE: CASE EVENT DATE: 202002
